FAERS Safety Report 7649545-1 (Version None)
Quarter: 2011Q3

REPORT INFORMATION
  Report Type: 
  Country: None (occurrence: None)
  Receive Date: 20110802
  Receipt Date: 20110719
  Transmission Date: 20111222
  Serious: Yes (Other)
  Sender: FDA-Public Use
  Company Number: US-RANBAXY-2011RR-41723

PATIENT
  Sex: Male

DRUGS (10)
  1. PREDNISOLONE [Suspect]
     Indication: BRONCHITIS
  2. AVELOX [Suspect]
     Indication: SINUSITIS
     Dosage: UNK
     Route: 065
     Dates: start: 20020501
  3. PREDNISOLONE [Suspect]
     Indication: SINUSITIS
     Route: 048
  4. LEVAQUIN [Suspect]
     Indication: SINUSITIS
     Dosage: UNK
     Route: 065
     Dates: start: 19990501
  5. LEVAQUIN [Suspect]
     Indication: RENAL COLIC
     Dosage: 500 MG, UNK
     Route: 042
     Dates: start: 20071208
  6. LEVAQUIN [Suspect]
     Indication: BRONCHITIS
  7. PREDNISOLONE [Suspect]
     Indication: OTITIS MEDIA ACUTE
  8. LEVAQUIN [Suspect]
     Indication: OTITIS MEDIA ACUTE
  9. METHYLPREDNISOLONE [Suspect]
     Indication: PRODUCT USED FOR UNKNOWN INDICATION
     Route: 048
  10. CIPROFLOXACIN [Suspect]
     Indication: PRODUCT USED FOR UNKNOWN INDICATION
     Route: 048

REACTIONS (5)
  - LIGAMENT RUPTURE [None]
  - LIGAMENT LAXITY [None]
  - JOINT INSTABILITY [None]
  - TENDON RUPTURE [None]
  - TENOSYNOVITIS [None]
